FAERS Safety Report 23924805 (Version 2)
Quarter: 2024Q3

REPORT INFORMATION
  Report Type: Spontaneous
  Country: IE (occurrence: IE)
  Receive Date: 20240531
  Receipt Date: 20240708
  Transmission Date: 20241017
  Serious: Yes (Death, Hospitalization, Congenital Anomaly, Other)
  Sender: MYLAN
  Company Number: None

PATIENT
  Sex: Female
  Weight: 1.535 kg

DRUGS (7)
  1. LETROZOLE [Suspect]
     Active Substance: LETROZOLE
     Indication: Therapeutic ovarian suppression
     Dosage: 2.5 MILLIGRAM, QD
     Route: 064
     Dates: start: 202103
  2. VALSARTAN [Suspect]
     Active Substance: VALSARTAN
     Indication: Hypertension
     Dosage: 80 MILLIGRAM, QD
     Route: 064
     Dates: end: 20211117
  3. LABETALOL [Suspect]
     Active Substance: LABETALOL\LABETALOL HYDROCHLORIDE
     Indication: Hypertension
     Dosage: UNK
     Route: 064
     Dates: start: 20211117
  4. GOSERELIN [Suspect]
     Active Substance: GOSERELIN
     Indication: Therapeutic ovarian suppression
     Dosage: UNK
     Route: 064
     Dates: start: 20210730, end: 20210730
  5. GOSERELIN [Suspect]
     Active Substance: GOSERELIN
     Dosage: UNK
     Route: 064
     Dates: start: 20210827, end: 20210827
  6. GOSERELIN [Suspect]
     Active Substance: GOSERELIN
     Dosage: UNK
     Route: 064
     Dates: start: 20210925, end: 20210925
  7. GOSERELIN [Suspect]
     Active Substance: GOSERELIN
     Dosage: UNK
     Route: 064
     Dates: start: 20211022, end: 20211022

REACTIONS (6)
  - Congenital anomaly [Fatal]
  - Oligohydramnios [Fatal]
  - Congenital cystic kidney disease [Fatal]
  - Pulmonary hypoplasia [Fatal]
  - Maternal drugs affecting foetus [Fatal]
  - Foetal exposure during pregnancy [Fatal]

NARRATIVE: CASE EVENT DATE: 20211122
